FAERS Safety Report 4870455-7 (Version None)
Quarter: 2006Q1

REPORT INFORMATION
  Report Type: 
  Country: None (occurrence: None)
  Receive Date: 20060103
  Receipt Date: 20050922
  Transmission Date: 20060701
  Serious: No
  Sender: FDA-Public Use
  Company Number: US-BRISTOL-MYERS SQUIBB COMPANY-13119599

PATIENT
  Age: 57 Year
  Sex: Female

DRUGS (2)
  1. TRAZODONE HCL [Suspect]
     Indication: INSOMNIA
     Dosage: REDUCED TO 25 MG ON SECOND EVENING, AND INCREASED TO 37.5 MG NIGHTLY THEREAFTER
     Dates: start: 20050915
  2. PROZAC [Concomitant]

REACTIONS (1)
  - VAGINAL PAIN [None]
